FAERS Safety Report 7961392-X (Version None)
Quarter: 2011Q4

REPORT INFORMATION
  Report Type: 
  Country: None (occurrence: None)
  Receive Date: 20111202
  Receipt Date: 20111118
  Transmission Date: 20120403
  Serious: Yes (Other)
  Sender: FDA-Public Use
  Company Number: TPA2011A07851

PATIENT
  Age: 6 Decade
  Sex: Female

DRUGS (1)
  1. EDARBI [Suspect]
     Indication: HYPERTENSION
     Dosage: 80 MG, 1 IN 1 D, PER ORAL
     Route: 048
     Dates: start: 20111101, end: 20111115

REACTIONS (1)
  - ANGIOEDEMA [None]
